FAERS Safety Report 25420925 (Version 2)
Quarter: 2025Q2

REPORT INFORMATION
  Report Type: Report from Study
  Country: US (occurrence: US)
  Receive Date: 20250611
  Receipt Date: 20250624
  Transmission Date: 20250716
  Serious: Yes (Other)
  Sender: UCB
  Company Number: US-UCBSA-2025034053

PATIENT
  Sex: Female
  Weight: 97.06 kg

DRUGS (4)
  1. BIMEKIZUMAB [Suspect]
     Active Substance: BIMEKIZUMAB
     Indication: Hidradenitis
     Dosage: 320 MILLIGRAM, EV 2 WEEKS(QOW)
     Route: 058
     Dates: start: 20250211, end: 20250520
  2. LAMICTAL [Concomitant]
     Active Substance: LAMOTRIGINE
     Indication: Depression
  3. CELECOXIB [Concomitant]
     Active Substance: CELECOXIB
     Indication: Anxiety
  4. CELECOXIB [Concomitant]
     Active Substance: CELECOXIB
     Indication: Depression

REACTIONS (3)
  - Suicidal ideation [Recovering/Resolving]
  - Bronchitis [Recovered/Resolved]
  - Hidradenitis [Recovering/Resolving]

NARRATIVE: CASE EVENT DATE: 20250101
